FAERS Safety Report 17339754 (Version 1)
Quarter: 2020Q1

REPORT INFORMATION
  Report Type: Spontaneous
  Country: FR (occurrence: FR)
  Receive Date: 20200129
  Receipt Date: 20200129
  Transmission Date: 20200409
  Serious: Yes (Life-Threatening, Other)
  Sender: FDA-Public Use
  Company Number: FR-PFIZER INC-2020038478

PATIENT
  Age: 36 Year
  Sex: Female
  Weight: 76 kg

DRUGS (9)
  1. LUTENYL [Concomitant]
     Active Substance: NOMEGESTROL ACETATE
     Dosage: UNK
  2. TERCIAN [CYAMEMAZINE TARTRATE] [Suspect]
     Active Substance: CYAMEMAZINE
     Dosage: SHE WOULD HAVE TAKEN 4 PLATELETS, THE EXACT QUANTITY IS NOT ESTIMATED
     Route: 048
     Dates: start: 20191123, end: 20191123
  3. TRAMADOL HCL [Suspect]
     Active Substance: TRAMADOL HYDROCHLORIDE
     Dosage: DOSE UNKNOWN
     Route: 048
     Dates: start: 20191123, end: 20191123
  4. EFFEXOR LP [Suspect]
     Active Substance: VENLAFAXINE HYDROCHLORIDE
     Dosage: SHE WOULD HAVE TAKEN 4 BLISTERS, THE EXACT QUANTITY IS NOT ESTIMATED
     Route: 048
     Dates: start: 20191123, end: 20191123
  5. FOLIC ACID ARROW [Concomitant]
     Active Substance: FOLIC ACID
     Dosage: UNK
  6. METOJECT [Concomitant]
     Active Substance: METHOTREXATE SODIUM
     Dosage: UNK
  7. PENTASA [Concomitant]
     Active Substance: MESALAMINE
     Dosage: UNK
  8. SERESTA [Concomitant]
     Active Substance: OXAZEPAM
     Dosage: UNK
  9. PARACETAMOL [Concomitant]
     Active Substance: ACETAMINOPHEN
     Dosage: UNK

REACTIONS (3)
  - Coma [Recovered/Resolved]
  - Intentional overdose [Recovered/Resolved]
  - Suicide attempt [Recovered/Resolved]

NARRATIVE: CASE EVENT DATE: 20191123
